FAERS Safety Report 15754765 (Version 1)
Quarter: 2018Q4

REPORT INFORMATION
  Report Type: Spontaneous
  Country: US (occurrence: US)
  Receive Date: 20181224
  Receipt Date: 20181224
  Transmission Date: 20190205
  Serious: Yes (Other)
  Sender: FDA-Public Use
  Company Number: US-TEVA-2018-US-990386

PATIENT
  Sex: Male

DRUGS (1)
  1. WARFARIN [Suspect]
     Active Substance: WARFARIN
     Route: 065

REACTIONS (5)
  - Petit mal epilepsy [Unknown]
  - Heart rate abnormal [Unknown]
  - Allergic reaction to excipient [Unknown]
  - Generalised tonic-clonic seizure [Unknown]
  - Seizure [Unknown]
